FAERS Safety Report 7394203-4 (Version None)
Quarter: 2011Q2

REPORT INFORMATION
  Report Type: 
  Country: None (occurrence: None)
  Receive Date: 20110405
  Receipt Date: 20110323
  Transmission Date: 20111010
  Serious: Yes (Other)
  Sender: FDA-Public Use
  Company Number: ES-ELI_LILLY_AND_COMPANY-ES201103006795

PATIENT
  Sex: Female

DRUGS (6)
  1. ZAMENE [Concomitant]
     Indication: DERMATITIS
     Dosage: 0.5 IN MORNINGS
     Route: 048
     Dates: start: 19900101
  2. ANALGILASA [Concomitant]
     Indication: PAIN
     Dosage: IF PAIN
     Route: 048
  3. FORTEO [Suspect]
     Indication: OSTEOPOROSIS
     Dosage: 20 UG, QD
     Route: 058
     Dates: start: 20090707, end: 20110311
  4. DOLQUINE [Concomitant]
     Indication: PAIN
     Dosage: 1 AT NIGHT
     Route: 048
     Dates: start: 20060101
  5. CALCIUM SANDOZ [Concomitant]
     Indication: OSTEOPOROSIS
     Dosage: 1 AT LUNCHTIME
     Route: 048
  6. IRBESARTAN [Concomitant]
     Indication: HYPERTENSION
     Dosage: 0.5 ALTERNATE DAYS
     Route: 048
     Dates: start: 20000101

REACTIONS (5)
  - DERMATITIS [None]
  - BREAST CANCER [None]
  - PAIN IN EXTREMITY [None]
  - LOWER RESPIRATORY TRACT INFECTION [None]
  - BLOOD CALCIUM INCREASED [None]
